FAERS Safety Report 9790104 (Version 1)
Quarter: 2013Q4

REPORT INFORMATION
  Report Type: Spontaneous
  Country: JP (occurrence: JP)
  Receive Date: 20131231
  Receipt Date: 20131231
  Transmission Date: 20140711
  Serious: Yes (Death)
  Sender: FDA-Public Use
  Company Number: JP-MYLANLABS-2013S1028595

PATIENT
  Age: 4 Decade
  Sex: Female
  Weight: 59 kg

DRUGS (5)
  1. MIRTAZAPINE [Suspect]
     Route: 065
  2. SERTRALINE [Suspect]
     Route: 065
  3. CHLORPROMAZINE [Suspect]
     Route: 065
  4. AMOXAPINE [Suspect]
     Route: 065
  5. ZOLPIDEM [Suspect]
     Route: 065

REACTIONS (3)
  - Toxicity to various agents [Fatal]
  - Death [Fatal]
  - Unevaluable event [Unknown]
